FAERS Safety Report 18746117 (Version 2)
Quarter: 2021Q1

REPORT INFORMATION
  Report Type: Spontaneous
  Country: US (occurrence: US)
  Receive Date: 20210115
  Receipt Date: 20210217
  Transmission Date: 20210419
  Serious: No
  Sender: FDA-Public Use
  Company Number: US-MYLANLABS-2021M1001668

PATIENT
  Sex: Female
  Weight: 55.7 kg

DRUGS (4)
  1. LIDOCAINE PATCH [Suspect]
     Active Substance: LIDOCAINE
     Indication: ARTHRALGIA
  2. LIDOCAINE PATCH [Suspect]
     Active Substance: LIDOCAINE
     Indication: PAIN
     Dosage: ONCE A DAY
     Route: 003
  3. LIDOCAINE PATCH [Suspect]
     Active Substance: LIDOCAINE
     Indication: SCIATICA
  4. LIDOCAINE PATCH [Suspect]
     Active Substance: LIDOCAINE
     Indication: INTERVERTEBRAL DISC PROTRUSION

REACTIONS (6)
  - Application site irritation [Not Recovered/Not Resolved]
  - Application site pruritus [Not Recovered/Not Resolved]
  - Application site erythema [Unknown]
  - Off label use [Unknown]
  - Application site mass [Unknown]
  - Product adhesion issue [Not Recovered/Not Resolved]

NARRATIVE: CASE EVENT DATE: 2020
